FAERS Safety Report 24579277 (Version 2)
Quarter: 2024Q4

REPORT INFORMATION
  Report Type: Spontaneous
  Country: US (occurrence: US)
  Receive Date: 20241105
  Receipt Date: 20241105
  Transmission Date: 20250115
  Serious: Yes (Hospitalization)
  Sender: ASTELLAS
  Company Number: US-ASTELLAS-2024-AER-016134

PATIENT
  Sex: Female

DRUGS (3)
  1. FEZOLINETANT [Suspect]
     Active Substance: FEZOLINETANT
     Indication: Graves^ disease
     Route: 065
  2. FEZOLINETANT [Suspect]
     Active Substance: FEZOLINETANT
     Indication: Hot flush
  3. FEZOLINETANT [Suspect]
     Active Substance: FEZOLINETANT
     Indication: Headache

REACTIONS (6)
  - Cardiac disorder [Unknown]
  - Back pain [Unknown]
  - Arthralgia [Unknown]
  - Pain [Unknown]
  - Drug effective for unapproved indication [Unknown]
  - Off label use [Unknown]
